FAERS Safety Report 6879772-2 (Version None)
Quarter: 2010Q3

REPORT INFORMATION
  Report Type: 
  Country: None (occurrence: None)
  Receive Date: 20100728
  Receipt Date: 20100518
  Transmission Date: 20110219
  Serious: No
  Sender: FDA-Public Use
  Company Number: US-MYLANLABS-2010S1008911

PATIENT
  Age: 58 Year
  Sex: Male

DRUGS (5)
  1. MIRTAZAPINE [Suspect]
     Indication: DEPRESSION
     Route: 048
     Dates: start: 20090501
  2. LAMICTAL [Concomitant]
  3. XANAX [Concomitant]
  4. VYTORIN [Concomitant]
  5. ASPIRIN [Concomitant]

REACTIONS (1)
  - NIGHTMARE [None]
